FAERS Safety Report 7946677-5 (Version None)
Quarter: 2011Q4

REPORT INFORMATION
  Report Type: 
  Country: None (occurrence: None)
  Receive Date: 20111129
  Receipt Date: 20111121
  Transmission Date: 20120403
  Serious: Yes (Hospitalization, Other)
  Sender: FDA-Public Use
  Company Number: CHPA2011US016509

PATIENT
  Age: 51 Year
  Sex: Female

DRUGS (4)
  1. TRANSDERM SCOP [Suspect]
     Indication: NAUSEA
     Dosage: 1 DF, Q72H
     Route: 062
  2. DILAUDID [Concomitant]
     Dosage: 2 MG QID
  3. MORPHINE [Concomitant]
     Dosage: 100 MG, TID
  4. TAPAZOLE [Concomitant]

REACTIONS (7)
  - WEIGHT DECREASED [None]
  - IMPAIRED GASTRIC EMPTYING [None]
  - THERAPEUTIC RESPONSE UNEXPECTED [None]
  - DRUG DEPENDENCE [None]
  - INCORRECT DRUG ADMINISTRATION DURATION [None]
  - GASTRIC ATONY [None]
  - OFF LABEL USE [None]
